FAERS Safety Report 20247254 (Version 1)
Quarter: 2021Q4

REPORT INFORMATION
  Report Type: Spontaneous
  Country: US (occurrence: None)
  Receive Date: 20211228
  Receipt Date: 20211228
  Transmission Date: 20220303
  Serious: Yes (Hospitalization)
  Sender: FDA-Public Use
  Company Number: None

PATIENT
  Sex: Female

DRUGS (3)
  1. SILDENAFIL CITRATE [Suspect]
     Active Substance: SILDENAFIL CITRATE
     Indication: Pulmonary arterial hypertension
     Dosage: FREQUENCY : 3 TIMES A DAY;?
     Route: 048
     Dates: start: 20211127
  2. UPTRAVI [Suspect]
     Active Substance: SELEXIPAG
  3. DEVICE [Suspect]
     Active Substance: DEVICE

REACTIONS (3)
  - Asthenia [None]
  - Device malfunction [None]
  - Cardio-respiratory arrest [None]
